FAERS Safety Report 8277307-3 (Version None)
Quarter: 2012Q2

REPORT INFORMATION
  Report Type: 
  Country: None (occurrence: None)
  Receive Date: 20120412
  Receipt Date: 20120403
  Transmission Date: 20120825
  Serious: Yes (Death, Disabling)
  Sender: FDA-Public Use
  Company Number: JP-GLAXOSMITHKLINE-B0777809A

PATIENT
  Sex: Male

DRUGS (1)
  1. LAMICTAL [Suspect]
     Indication: EPILEPSY
     Dosage: 50MG PER DAY
     Route: 048
     Dates: start: 20111208, end: 20120124

REACTIONS (10)
  - RASH [None]
  - DEHYDRATION [None]
  - GENERAL PHYSICAL HEALTH DETERIORATION [None]
  - RASH GENERALISED [None]
  - MUCOCUTANEOUS RASH [None]
  - LOWER GASTROINTESTINAL HAEMORRHAGE [None]
  - GASTROENTERITIS [None]
  - DIARRHOEA [None]
  - INTESTINAL ULCER [None]
  - GASTROINTESTINAL HAEMORRHAGE [None]
